FAERS Safety Report 26052302 (Version 2)
Quarter: 2025Q4

REPORT INFORMATION
  Report Type: Spontaneous
  Country: US (occurrence: US)
  Receive Date: 20251117
  Receipt Date: 20251118
  Transmission Date: 20260117
  Serious: Yes (Life-Threatening)
  Sender: ROCHE
  Company Number: US-ROCHE-10000434426

PATIENT
  Sex: Female

DRUGS (2)
  1. XOLAIR [Suspect]
     Active Substance: OMALIZUMAB
     Indication: Product used for unknown indication
     Route: 065
  2. DUPILUMAB [Suspect]
     Active Substance: DUPILUMAB
     Indication: Idiopathic urticaria
     Route: 065

REACTIONS (1)
  - Anaphylactic reaction [Recovered/Resolved]
